FAERS Safety Report 12777069 (Version 1)
Quarter: 2016Q3

REPORT INFORMATION
  Report Type: Report from Study
  Country: DE (occurrence: DE)
  Receive Date: 20160923
  Receipt Date: 20160923
  Transmission Date: 20161109
  Serious: Yes (Hospitalization)
  Sender: FDA-Public Use
  Company Number: US-ASTRAZENECA-2016SF01510

PATIENT
  Age: 253 Day
  Sex: Male
  Weight: 3.2 kg

DRUGS (16)
  1. SYNAGIS [Suspect]
     Active Substance: PALIVIZUMAB
     Indication: PATENT DUCTUS ARTERIOSUS
     Dosage: 147 MG
     Route: 030
     Dates: start: 20110315, end: 20110315
  2. SYNAGIS [Suspect]
     Active Substance: PALIVIZUMAB
     Indication: BRONCHOPULMONARY DYSPLASIA
     Dosage: 114 MG
     Route: 030
     Dates: start: 20100921, end: 20100921
  3. SYNAGIS [Suspect]
     Active Substance: PALIVIZUMAB
     Indication: BRONCHOPULMONARY DYSPLASIA
     Dosage: 126 MG
     Route: 030
     Dates: start: 20101116, end: 20101116
  4. SYNAGIS [Suspect]
     Active Substance: PALIVIZUMAB
     Indication: PATENT DUCTUS ARTERIOSUS
     Dosage: 132 MG
     Route: 030
     Dates: start: 20101221, end: 20101221
  5. SYNAGIS [Suspect]
     Active Substance: PALIVIZUMAB
     Indication: PATENT DUCTUS ARTERIOSUS
     Dosage: 138 MG
     Route: 030
     Dates: start: 20110215, end: 20110215
  6. SYNAGIS [Suspect]
     Active Substance: PALIVIZUMAB
     Indication: BRONCHOPULMONARY DYSPLASIA
     Dosage: 150 MG
     Route: 030
     Dates: start: 20110412, end: 20110412
  7. SYNAGIS [Suspect]
     Active Substance: PALIVIZUMAB
     Indication: PATENT DUCTUS ARTERIOSUS
     Dosage: 126 MG
     Route: 030
     Dates: start: 20101116, end: 20101116
  8. SYNAGIS [Suspect]
     Active Substance: PALIVIZUMAB
     Indication: PATENT DUCTUS ARTERIOSUS
     Dosage: 114 MG
     Route: 030
     Dates: start: 20100921, end: 20100921
  9. SYNAGIS [Suspect]
     Active Substance: PALIVIZUMAB
     Indication: PATENT DUCTUS ARTERIOSUS
     Dosage: 140 MG
     Route: 030
     Dates: start: 20110118, end: 20110118
  10. SYNAGIS [Suspect]
     Active Substance: PALIVIZUMAB
     Indication: PATENT DUCTUS ARTERIOSUS
     Dosage: 118 MG
     Route: 030
     Dates: start: 20101019, end: 20101019
  11. SYNAGIS [Suspect]
     Active Substance: PALIVIZUMAB
     Indication: BRONCHOPULMONARY DYSPLASIA
     Dosage: 147 MG
     Route: 030
     Dates: start: 20110315, end: 20110315
  12. SYNAGIS [Suspect]
     Active Substance: PALIVIZUMAB
     Indication: PATENT DUCTUS ARTERIOSUS
     Dosage: 150 MG
     Route: 030
     Dates: start: 20110412, end: 20110412
  13. SYNAGIS [Suspect]
     Active Substance: PALIVIZUMAB
     Indication: BRONCHOPULMONARY DYSPLASIA
     Dosage: 132 MG
     Route: 030
     Dates: start: 20101221, end: 20101221
  14. SYNAGIS [Suspect]
     Active Substance: PALIVIZUMAB
     Indication: BRONCHOPULMONARY DYSPLASIA
     Dosage: 118 MG
     Route: 030
     Dates: start: 20101019, end: 20101019
  15. SYNAGIS [Suspect]
     Active Substance: PALIVIZUMAB
     Indication: BRONCHOPULMONARY DYSPLASIA
     Dosage: 140 MG
     Route: 030
     Dates: start: 20110118, end: 20110118
  16. SYNAGIS [Suspect]
     Active Substance: PALIVIZUMAB
     Indication: BRONCHOPULMONARY DYSPLASIA
     Dosage: 138 MG
     Route: 030
     Dates: start: 20110215, end: 20110215

REACTIONS (1)
  - Congenital diaphragmatic hernia [Recovered/Resolved]

NARRATIVE: CASE EVENT DATE: 20101208
